FAERS Safety Report 4729960-6 (Version None)
Quarter: 2005Q3

REPORT INFORMATION
  Report Type: 
  Country: None (occurrence: None)
  Receive Date: 20050801
  Receipt Date: 20050722
  Transmission Date: 20060218
  Serious: Yes (Hospitalization)
  Sender: FDA-Public Use
  Company Number: 2005CG01291

PATIENT
  Age: 49 Year
  Sex: Female
  Weight: 86 kg

DRUGS (7)
  1. NEXIUM [Suspect]
     Route: 048
  2. TAHOR [Suspect]
     Route: 048
  3. NAPROSYN [Suspect]
     Indication: ARTHROPATHY
     Route: 048
     Dates: start: 20030101, end: 20050207
  4. PANOS [Suspect]
     Indication: SLEEP DISORDER
     Route: 048
     Dates: end: 20041231
  5. ALDALIX [Suspect]
     Indication: ESSENTIAL HYPERTENSION
     Dosage: 50 + 20 MG QD
     Dates: end: 20041215
  6. VASTAREL [Concomitant]
  7. METEOSPASMYL [Concomitant]

REACTIONS (2)
  - MILIA [None]
  - PORPHYRIA NON-ACUTE [None]
